FAERS Safety Report 12376845 (Version 1)
Quarter: 2016Q2

REPORT INFORMATION
  Report Type: Report from Study
  Country: US (occurrence: US)
  Receive Date: 20160517
  Receipt Date: 20160517
  Transmission Date: 20160815
  Serious: No
  Sender: FDA-Public Use
  Company Number: US-MALLINCKRODT-T201503404

PATIENT
  Age: 79 Year
  Sex: Female

DRUGS (19)
  1. PREDNISONE. [Concomitant]
     Active Substance: PREDNISONE
     Dosage: UNK
  2. SYNTHROID [Concomitant]
     Active Substance: LEVOTHYROXINE SODIUM
  3. REPOSITORY CORTICOTROPIN INJECTION [Suspect]
     Active Substance: CORTICOTROPIN
     Indication: POLYMYOSITIS
     Dosage: 80 UNK, UNK
     Route: 058
     Dates: start: 20150203
  4. ENABLEX [Concomitant]
     Active Substance: DARIFENACIN HYDROBROMIDE
  5. METHOTREXATE [Concomitant]
     Active Substance: METHOTREXATE
  6. BIOTIN [Concomitant]
     Active Substance: BIOTIN
  7. FOLIC ACID. [Concomitant]
     Active Substance: FOLIC ACID
  8. COENZYME Q10 [Concomitant]
     Active Substance: UBIDECARENONE
  9. VITAMIN C [Concomitant]
     Active Substance: ASCORBIC ACID
  10. METHYLCELLULOSE [Concomitant]
     Active Substance: METHYLCELLULOSES
  11. TESTOPEL [Concomitant]
     Active Substance: TESTOSTERONE
  12. COZAAR [Concomitant]
     Active Substance: LOSARTAN POTASSIUM
  13. GLUCOPHAGE [Concomitant]
     Active Substance: METFORMIN HYDROCHLORIDE
  14. ZINC [Concomitant]
     Active Substance: ZINC\ZINC CHLORIDE
  15. LEUCOVORIN. [Concomitant]
     Active Substance: LEUCOVORIN
  16. OCUFLOX [Concomitant]
     Active Substance: OFLOXACIN
  17. GLUCOSAMINE [Concomitant]
     Active Substance: GLUCOSAMINE
  18. CALCIUM [Concomitant]
     Active Substance: CALCIUM
  19. MAGNESIUM [Concomitant]
     Active Substance: MAGNESIUM

REACTIONS (4)
  - Musculoskeletal pain [Not Recovered/Not Resolved]
  - Weight loss poor [Not Recovered/Not Resolved]
  - Arthralgia [Not Recovered/Not Resolved]
  - Drug administered at inappropriate site [Not Recovered/Not Resolved]

NARRATIVE: CASE EVENT DATE: 20150203
